FAERS Safety Report 11773455 (Version 2)
Quarter: 2015Q4

REPORT INFORMATION
  Report Type: Report from Study
  Country: FR (occurrence: FR)
  Receive Date: 20151124
  Receipt Date: 20151215
  Transmission Date: 20160304
  Serious: Yes (Death)
  Sender: FDA-Public Use
  Company Number: FR-B.I. PHARMACEUTICALS,INC./RIDGEFIELD-2015-BI-65745FF

PATIENT
  Age: 46 Year
  Sex: Male

DRUGS (1)
  1. GILOTRIF [Suspect]
     Active Substance: AFATINIB
     Indication: NON-SMALL CELL LUNG CANCER
     Dosage: DAILY DOSE: 40
     Route: 048
     Dates: start: 201407

REACTIONS (6)
  - Hepatitis [Unknown]
  - Neoplasm progression [Fatal]
  - Cell death [Fatal]
  - Hepatitis [Fatal]
  - Jaundice [Fatal]
  - Hepatic function abnormal [Fatal]

NARRATIVE: CASE EVENT DATE: 2014
